FAERS Safety Report 6172297-1 (Version None)
Quarter: 2009Q2

REPORT INFORMATION
  Report Type: 
  Country: None (occurrence: None)
  Receive Date: 20090429
  Receipt Date: 20090417
  Transmission Date: 20091009
  Serious: Yes (Death, Life-Threatening)
  Sender: FDA-Public Use
  Company Number: JP-PFIZER INC-2009192465

PATIENT

DRUGS (9)
  1. ZOLOFT [Suspect]
     Indication: DEPRESSION
     Dosage: 75 MG, 1X/DAY
     Route: 048
     Dates: start: 20080130
  2. SULPIRIDE [Concomitant]
     Route: 048
  3. WYPAX [Concomitant]
     Route: 048
  4. BROTIZOLAM [Concomitant]
     Route: 048
  5. TAKEPRON [Concomitant]
     Route: 048
  6. MARZULENE S [Concomitant]
     Route: 048
  7. MAGNESIUM OXIDE [Concomitant]
     Route: 048
  8. MYSLEE [Concomitant]
     Route: 048
  9. DEPAS [Concomitant]
     Route: 048

REACTIONS (4)
  - COMPLETED SUICIDE [None]
  - DRUG INEFFECTIVE [None]
  - IMPULSIVE BEHAVIOUR [None]
  - IRRITABILITY [None]
